FAERS Safety Report 9807124 (Version 2)
Quarter: 2014Q2

REPORT INFORMATION
  Report Type: Report from Study
  Country: JP (occurrence: JP)
  Receive Date: 20140110
  Receipt Date: 20140527
  Transmission Date: 20141212
  Serious: Yes (Death, Hospitalization)
  Sender: FDA-Public Use
  Company Number: JP-ROCHE-1330752

PATIENT
  Age: 88 Year
  Sex: Male

DRUGS (1)
  1. METHOXY POLYETHYLENE GLYCOL-EPOETIN BETA [Suspect]
     Indication: NEPHROGENIC ANAEMIA
     Route: 058
     Dates: start: 20120213, end: 20120622

REACTIONS (4)
  - Cardiac failure [Fatal]
  - Decreased appetite [Unknown]
  - General physical health deterioration [Unknown]
  - Blood pressure decreased [Unknown]
